FAERS Safety Report 16209465 (Version 3)
Quarter: 2019Q2

REPORT INFORMATION
  Report Type: Spontaneous
  Country: CH (occurrence: CH)
  Receive Date: 20190417
  Receipt Date: 20190423
  Transmission Date: 20190711
  Serious: Yes (Death, Hospitalization, Other)
  Sender: FDA-Public Use
  Company Number: CH-PFIZER INC-2019157640

PATIENT
  Age: 89 Year
  Sex: Male

DRUGS (8)
  1. MARCOUMAR [Concomitant]
     Active Substance: PHENPROCOUMON
     Dosage: UNK
     Route: 048
     Dates: end: 20190330
  2. CIPRALEX [Concomitant]
     Active Substance: ESCITALOPRAM OXALATE
     Dosage: UNK
     Route: 048
     Dates: end: 20190330
  3. TRITTICO [Suspect]
     Active Substance: TRAZODONE HYDROCHLORIDE
     Dosage: UNK
     Route: 048
     Dates: end: 20190330
  4. PANTOZOL [Suspect]
     Active Substance: PANTOPRAZOLE SODIUM
     Dosage: UNK
     Route: 048
     Dates: end: 20190330
  5. PONSTAN [Suspect]
     Active Substance: MEFENAMIC ACID
     Dosage: UNK
     Route: 048
     Dates: end: 20190330
  6. MINALGIN [Suspect]
     Active Substance: METAMIZOLE
     Dosage: 0.5 G/ML DROPS, 20 GTT, EVERY 12 HOURS 20-0-20-0
     Route: 048
     Dates: end: 20190330
  7. DAFALGAN [Suspect]
     Active Substance: ACETAMINOPHEN
     Dosage: UNK
     Route: 048
     Dates: end: 20190330
  8. PARAGAR [GELIDIUM AMANSII EXTRACT;PARAFFIN, LIQUID;PHENOLPHTHALEIN] [Concomitant]
     Dosage: UNK
     Route: 048
     Dates: end: 20190330

REACTIONS (2)
  - Pancytopenia [Fatal]
  - Sepsis [Fatal]

NARRATIVE: CASE EVENT DATE: 20190330
